FAERS Safety Report 8572937-3 (Version None)
Quarter: 2012Q2

REPORT INFORMATION
  Report Type: 
  Country: None (occurrence: None)
  Receive Date: 20120420
  Receipt Date: 20120420
  Transmission Date: 20120825
  Serious: Yes (Other)
  Sender: FDA-Public Use
  Company Number: ALL1-2012-00603

PATIENT
  Age: 52 Year
  Sex: Female
  Weight: 64.9 kg

DRUGS (6)
  1. TRAZODONE HCL [Concomitant]
  2. LEXAPRO [Concomitant]
  3. CLONAZEPAM [Concomitant]
  4. VYVANSE [Suspect]
     Indication: BIPOLAR II DISORDER
     Dosage: 80 MG, 1X/DAY:QD ; 80 MG, 1X/DAY:GD (TWO 40 MG CAPSULES), ORAL
     Route: 048
     Dates: start: 20090101
  5. LAMICTAL [Concomitant]
  6. ZEGERID	/00661201/ (OMEPRAZOLE) [Concomitant]

REACTIONS (10)
  - LETHARGY [None]
  - DRUG EFFECT DECREASED [None]
  - MENTAL IMPAIRMENT [None]
  - OVERDOSE [None]
  - DRUG WITHDRAWAL SYNDROME [None]
  - DEPRESSION [None]
  - CONFUSIONAL STATE [None]
  - INTENTIONAL DRUG MISUSE [None]
  - DRUG INEFFECTIVE [None]
  - PRODUCT QUALITY ISSUE [None]
